FAERS Safety Report 20083623 (Version 2)
Quarter: 2022Q1

REPORT INFORMATION
  Report Type: Report from Study
  Country: CA (occurrence: CA)
  Receive Date: 20211118
  Receipt Date: 20220314
  Transmission Date: 20220424
  Serious: Yes (Hospitalization, Other)
  Sender: FDA-Public Use
  Company Number: CA-ABBVIE-21K-028-4165292-00

PATIENT
  Age: 78 Year
  Sex: Male

DRUGS (1)
  1. LUPRON DEPOT [Suspect]
     Active Substance: LEUPROLIDE ACETATE
     Indication: Prostate cancer
     Route: 030
     Dates: start: 20200418

REACTIONS (1)
  - Coronary artery bypass [Unknown]

NARRATIVE: CASE EVENT DATE: 20211005
